FAERS Safety Report 5319131-7 (Version None)
Quarter: 2007Q1

REPORT INFORMATION
  Report Type: 
  Country: None (occurrence: None)
  Receive Date: 20070201
  Receipt Date: 20060705
  Transmission Date: 20070707
  Serious: Yes (Other)
  Sender: FDA-Public Use
  Company Number: US-SHR-03-010060

PATIENT
  Age: 32 Year
  Sex: Female
  Weight: 118 kg

DRUGS (5)
  1. MIRENA [Suspect]
     Indication: CONTRACEPTION
     Dosage: 20 UG/DAY, CONT, INTRA-UTERINE
     Route: 015
     Dates: start: 20030301, end: 20030701
  2. GLUCOPHAGE [Concomitant]
  3. TOPROL-XL [Concomitant]
  4. CATAFLAM [Concomitant]
  5. OXYCONTIN [Concomitant]

REACTIONS (3)
  - ABDOMINAL PAIN [None]
  - METRORRHAGIA [None]
  - UTERINE PERFORATION [None]
